FAERS Safety Report 9132389 (Version 1)
Quarter: 2013Q1

REPORT INFORMATION
  Report Type: Spontaneous
  Country: US (occurrence: US)
  Receive Date: 20130301
  Receipt Date: 20130301
  Transmission Date: 20140127
  Serious: Yes (Hospitalization)
  Sender: FDA-Public Use
  Company Number: US-ROCHE-1193242

PATIENT
  Age: 55 Year
  Sex: Male
  Weight: 90.8 kg

DRUGS (3)
  1. KLONOPIN [Suspect]
     Indication: CONVULSION
     Route: 065
  2. DILANTIN [Suspect]
     Indication: CONVULSION
     Route: 048
  3. ETHOSUXIMIDE [Suspect]
     Indication: CONVULSION
     Route: 048

REACTIONS (1)
  - Convulsion [Unknown]
